FAERS Safety Report 8579559-9 (Version None)
Quarter: 2012Q3

REPORT INFORMATION
  Report Type: 
  Country: None (occurrence: None)
  Receive Date: 20120808
  Receipt Date: 20120807
  Transmission Date: 20120928
  Serious: Yes (Hospitalization)
  Sender: FDA-Public Use
  Company Number: PHHO2011NL06785

PATIENT
  Sex: Male
  Weight: 82 kg

DRUGS (6)
  1. BLINDED NO TREATMENT RECEIVED [Suspect]
     Dosage: NO TREATMENT
     Dates: start: 20110416, end: 20110418
  2. BLINDED NO TREATMENT RECEIVED [Suspect]
     Indication: TUBEROUS SCLEROSIS
     Dosage: CODE NOT BROKEN
     Route: 048
     Dates: start: 20100826, end: 20110415
  3. AFINITOR [Suspect]
     Indication: TUBEROUS SCLEROSIS
     Dosage: CODE NOT BROKEN
     Route: 048
     Dates: start: 20100826, end: 20110415
  4. AFINITOR [Suspect]
     Dosage: NO TREATMENT
     Dates: start: 20110416, end: 20110418
  5. PLACEBO [Suspect]
     Indication: TUBEROUS SCLEROSIS
     Dosage: CODE NOT BROKEN
     Route: 048
     Dates: start: 20100826, end: 20110415
  6. PLACEBO [Suspect]
     Dosage: NO TREATMENT
     Dates: start: 20110416, end: 20110418

REACTIONS (1)
  - APPENDICITIS [None]
